FAERS Safety Report 11250852 (Version 1)
Quarter: 2015Q3

REPORT INFORMATION
  Report Type: Spontaneous
  Country: US (occurrence: US)
  Receive Date: 20150708
  Receipt Date: 20150708
  Transmission Date: 20151125
  Serious: No
  Sender: FDA-Public Use
  Company Number: US-ELI_LILLY_AND_COMPANY-US201105005623

PATIENT
  Age: 49 Year
  Sex: Male

DRUGS (1)
  1. PROZAC [Suspect]
     Active Substance: FLUOXETINE HYDROCHLORIDE
     Indication: DEPRESSION

REACTIONS (7)
  - Feelings of worthlessness [Unknown]
  - Restlessness [Unknown]
  - Fatigue [Unknown]
  - Irritability [Unknown]
  - Depressed mood [Unknown]
  - Anxiety [Unknown]
  - Depression [Unknown]
